FAERS Safety Report 15460558 (Version 2)
Quarter: 2019Q1

REPORT INFORMATION
  Report Type: Spontaneous
  Country: DE (occurrence: DE)
  Receive Date: 20181003
  Receipt Date: 20190204
  Transmission Date: 20190417
  Serious: Yes (Other)
  Sender: FDA-Public Use
  Company Number: DE-MYLANLABS-2018M1071475

PATIENT
  Age: 23 Year
  Sex: Female

DRUGS (10)
  1. CEFTAZIDIME. [Concomitant]
     Active Substance: CEFTAZIDIME
     Indication: ENDOPHTHALMITIS
  2. AMPHOTERICIN B. [Concomitant]
     Active Substance: AMPHOTERICIN B
     Dosage: UNK
  3. TERBINAFINE. [Suspect]
     Active Substance: TERBINAFINE
     Indication: KERATITIS FUNGAL
     Dosage: 250 MILLIGRAM
     Route: 062
  4. VORICONAZOLE. [Suspect]
     Active Substance: VORICONAZOLE
     Indication: PRODUCT USED FOR UNKNOWN INDICATION
     Dosage: UNK
  5. CEFTAZIDIME. [Concomitant]
     Active Substance: CEFTAZIDIME
     Indication: KERATITIS FUNGAL
     Dosage: UNK
  6. NATAMYCIN [Concomitant]
     Active Substance: NATAMYCIN
     Indication: KERATITIS FUNGAL
     Dosage: 5.0 %
     Route: 061
  7. AMPHOTERICIN B. [Concomitant]
     Active Substance: AMPHOTERICIN B
     Indication: KERATITIS FUNGAL
     Dosage: UNK
     Route: 031
  8. VANCOMYCIN [Concomitant]
     Active Substance: VANCOMYCIN
     Indication: KERATITIS FUNGAL
     Dosage: UNK
  9. VANCOMYCIN [Concomitant]
     Active Substance: VANCOMYCIN
     Indication: ENDOPHTHALMITIS
  10. TERBINAFINE. [Suspect]
     Active Substance: TERBINAFINE
     Indication: KERATITIS FUNGAL
     Dosage: 250 MG, UNK

REACTIONS (3)
  - Pathogen resistance [Unknown]
  - Product use in unapproved indication [Unknown]
  - Intentional product misuse [Unknown]
